FAERS Safety Report 25520513 (Version 2)
Quarter: 2025Q3

REPORT INFORMATION
  Report Type: Spontaneous
  Country: US (occurrence: US)
  Receive Date: 20250704
  Receipt Date: 20250716
  Transmission Date: 20251021
  Serious: Yes (Other)
  Sender: PFIZER
  Company Number: US-PFIZER INC-PV202500078165

PATIENT
  Age: 75 Year
  Sex: Female
  Weight: 53.968 kg

DRUGS (2)
  1. NORPACE [Suspect]
     Active Substance: DISOPYRAMIDE PHOSPHATE
     Indication: Atrial fibrillation
     Dosage: 200 MG, DAILY(100MG 2X/DAY)
     Route: 048
     Dates: start: 202506
  2. NORPACE [Suspect]
     Active Substance: DISOPYRAMIDE PHOSPHATE
     Route: 048
     Dates: start: 20250711

REACTIONS (3)
  - Neuropathy peripheral [Not Recovered/Not Resolved]
  - Panniculitis [Unknown]
  - Peripheral swelling [Unknown]

NARRATIVE: CASE EVENT DATE: 20250101
